FAERS Safety Report 5325733-4 (Version None)
Quarter: 2007Q2

REPORT INFORMATION
  Report Type: 
  Country: None (occurrence: None)
  Receive Date: 20070515
  Receipt Date: 20070508
  Transmission Date: 20071010
  Serious: Yes (Other)
  Sender: FDA-Public Use
  Company Number: AU-MERCK-0610AUS00049

PATIENT
  Age: 63 Year
  Sex: Female

DRUGS (8)
  1. FOSAMAX [Suspect]
     Indication: OSTEOPOROSIS
     Route: 048
  2. FOSAMAX [Suspect]
     Indication: FEMORAL NECK FRACTURE
     Route: 048
  3. OMEPRAZOLE MAGNESIUM [Suspect]
     Indication: GASTROOESOPHAGEAL REFLUX DISEASE
     Route: 065
     Dates: start: 20060101, end: 20060101
  4. ACETAMINOPHEN [Suspect]
     Route: 065
  5. AMLODIPINE BESYLATE [Suspect]
     Indication: HYPERTENSION
     Route: 065
  6. METOPROLOL TARTRATE [Suspect]
     Indication: HYPERTENSION
     Route: 065
  7. CALCIUM CARBONATE [Suspect]
     Route: 065
  8. LEVOTHYROXINE SODIUM [Suspect]
     Indication: HYPOTHYROIDISM
     Route: 065

REACTIONS (6)
  - ARTHRALGIA [None]
  - HAEMOGLOBIN DECREASED [None]
  - NEPHRITIS INTERSTITIAL [None]
  - RENAL FAILURE ACUTE [None]
  - RENAL IMPAIRMENT [None]
  - WHITE BLOOD CELL COUNT INCREASED [None]
